FAERS Safety Report 8808856 (Version 2)
Quarter: 2013Q1

REPORT INFORMATION
  Report Type: Spontaneous
  Country: US (occurrence: None)
  Receive Date: 20120920
  Receipt Date: 20121207
  Transmission Date: 20140127
  Serious: Yes (Hospitalization)
  Sender: FDA-Public Use
  Company Number: 2012SP002039

PATIENT
  Age: 51 Year
  Sex: Female

DRUGS (4)
  1. FLUOROURACIL (FLUOROURACIL) [Suspect]
     Indication: PRODUCT USED FOR UNKNOWN INDICATION
     Dosage: 00 MG/M**2; IV
     Route: 042
     Dates: start: 20120822, end: 20120822
  2. IRINOTECAN [Suspect]
     Indication: PRODUCT USED FOR UNKNOWN INDICATION
     Dosage: 180 MG/M**2; IV
     Route: 042
     Dates: start: 20120822, end: 20120822
  3. CETUXIMAB [Suspect]
     Dosage: 1400 MG/M**1;IV
     Route: 042
     Dates: start: 20120822, end: 20120829
  4. FOLINIC ACID [Suspect]
     Dosage: 400 MG/M**2;IV
     Route: 042
     Dates: start: 20120822, end: 20120822

REACTIONS (3)
  - Febrile neutropenia [None]
  - Diarrhoea [None]
  - Hypotension [None]
